FAERS Safety Report 6258830-X (Version None)
Quarter: 2009Q3

REPORT INFORMATION
  Report Type: 
  Country: None (occurrence: None)
  Receive Date: 20090702
  Receipt Date: 20090618
  Transmission Date: 20100115
  Serious: Yes (Other)
  Sender: FDA-Public Use
  Company Number: 2009AL002256

PATIENT
  Age: 80 Year
  Sex: Male

DRUGS (8)
  1. DIGOXIN [Suspect]
     Dosage: 0.125MG, DAILY, PO
     Route: 048
     Dates: start: 20020214, end: 20090421
  2. ASPIRIN [Concomitant]
  3. SOTALOL [Concomitant]
  4. COZAAR [Concomitant]
  5. SPIRONOLACTONE [Concomitant]
  6. FUROSEMIDE [Concomitant]
  7. SIMVASTATIN [Concomitant]
  8. WARFARIN SODIUM [Concomitant]

REACTIONS (3)
  - ECONOMIC PROBLEM [None]
  - INJURY [None]
  - SURGERY [None]
